FAERS Safety Report 13532574 (Version 1)
Quarter: 2017Q2

REPORT INFORMATION
  Report Type: Not Available
  Country: US (occurrence: US)
  Receive Date: 20170510
  Receipt Date: 20170510
  Transmission Date: 20170830
  Serious: No
  Sender: FDA-Public Use
  Company Number: US-CIPHERPHARMA-2017-US-003103

PATIENT
  Age: 41 Year
  Sex: Male
  Weight: 92.99 kg

DRUGS (1)
  1. SITAVIG [Suspect]
     Active Substance: ACYCLOVIR
     Dosage: 1 TABLET ORALLY
     Route: 048
     Dates: start: 20170321, end: 20170321

REACTIONS (2)
  - Headache [Recovered/Resolved]
  - Accidental exposure to product [Unknown]

NARRATIVE: CASE EVENT DATE: 20170321
